FAERS Safety Report 9396076 (Version 1)
Quarter: 2013Q3

REPORT INFORMATION
  Report Type: Spontaneous
  Country: IT (occurrence: IT)
  Receive Date: 20130711
  Receipt Date: 20130711
  Transmission Date: 20140515
  Serious: Yes (Other)
  Sender: FDA-Public Use
  Company Number: IT-TEVA-416635ISR

PATIENT
  Age: 68 Year
  Sex: Female
  Weight: 57 kg

DRUGS (4)
  1. PACLITAXEL TEVA [Suspect]
     Indication: OVARIAN CANCER
     Route: 042
     Dates: start: 20130410, end: 20130410
  2. ONDANSETRON KABI [Concomitant]
     Dosage: 8 MILLIGRAM DAILY;
     Route: 042
     Dates: start: 20130410, end: 20130410
  3. EMEND 125 MG [Concomitant]
     Dosage: 125 MILLIGRAM DAILY;
     Route: 048
     Dates: start: 20130410, end: 20130410
  4. FIORI DI BACH [Concomitant]

REACTIONS (4)
  - Tachycardia [Recovered/Resolved]
  - Chest discomfort [Recovered/Resolved]
  - Back pain [Recovered/Resolved]
  - Malaise [Recovered/Resolved]
